FAERS Safety Report 9415915 (Version 38)
Quarter: 2020Q2

REPORT INFORMATION
  Report Type: Report from Study
  Country: CA (occurrence: CA)
  Receive Date: 20130724
  Receipt Date: 20200504
  Transmission Date: 20200714
  Serious: Yes (Other)
  Sender: FDA-Public Use
  Company Number: CA-ROCHE-1252110

PATIENT
  Age: 36 Year
  Sex: Female
  Weight: 93 kg

DRUGS (16)
  1. RITUXAN [Suspect]
     Active Substance: RITUXIMAB
     Indication: RHEUMATOID ARTHRITIS
     Dosage: DAY 1 AND DAY 15
     Route: 042
     Dates: start: 20090505, end: 20100827
  2. FOLIC ACID. [Concomitant]
     Active Substance: FOLIC ACID
  3. ACTEMRA [Suspect]
     Active Substance: TOCILIZUMAB
     Indication: SYSTEMIC LUPUS ERYTHEMATOSUS
     Route: 042
     Dates: start: 20130403
  4. ACTEMRA [Suspect]
     Active Substance: TOCILIZUMAB
     Indication: RHEUMATOID ARTHRITIS
     Route: 058
     Dates: start: 20170222
  5. ACTEMRA [Suspect]
     Active Substance: TOCILIZUMAB
     Indication: RHEUMATOID ARTHRITIS
     Route: 042
     Dates: start: 20120510
  6. ACTEMRA [Suspect]
     Active Substance: TOCILIZUMAB
     Route: 042
     Dates: start: 2015
  7. RITUXAN [Suspect]
     Active Substance: RITUXIMAB
     Indication: SYSTEMIC LUPUS ERYTHEMATOSUS
  8. ACTEMRA [Suspect]
     Active Substance: TOCILIZUMAB
     Route: 042
     Dates: start: 20150910, end: 20170131
  9. METHOTREXATE. [Concomitant]
     Active Substance: METHOTREXATE
  10. PREVACID [Concomitant]
     Active Substance: LANSOPRAZOLE
  11. ACTEMRA [Suspect]
     Active Substance: TOCILIZUMAB
     Route: 042
     Dates: start: 20140529
  12. TYLENOL WITH CODEINE [Concomitant]
     Active Substance: ACETAMINOPHEN\CODEINE PHOSPHATE
  13. MAVIK [Concomitant]
     Active Substance: TRANDOLAPRIL
  14. METFORMIN [Concomitant]
     Active Substance: METFORMIN HYDROCHLORIDE
     Route: 065
  15. PREDNISONE. [Suspect]
     Active Substance: PREDNISONE
     Indication: INFLAMMATION
     Dosage: UNKNOWN DOSE
     Route: 065
  16. PLAQUENIL [Concomitant]
     Active Substance: HYDROXYCHLOROQUINE SULFATE

REACTIONS (29)
  - Hip arthroplasty [Recovered/Resolved]
  - Iritis [Unknown]
  - Weight decreased [Unknown]
  - Oropharyngeal pain [Unknown]
  - Cataract [Not Recovered/Not Resolved]
  - Dermatitis infected [Recovered/Resolved]
  - Retinal detachment [Unknown]
  - Fine motor skill dysfunction [Unknown]
  - Iritis [Not Recovered/Not Resolved]
  - Off label use [Unknown]
  - Cough [Not Recovered/Not Resolved]
  - Corneal disorder [Not Recovered/Not Resolved]
  - Nasopharyngitis [Not Recovered/Not Resolved]
  - Weight increased [Unknown]
  - Eye infection [Unknown]
  - Pyrexia [Unknown]
  - Corneal perforation [Recovering/Resolving]
  - Dental caries [Recovered/Resolved]
  - Blood pressure diastolic increased [Not Recovered/Not Resolved]
  - Uveitis [Not Recovered/Not Resolved]
  - Ulcerative keratitis [Unknown]
  - Drug ineffective [Unknown]
  - Arthropathy [Unknown]
  - Tooth extraction [Unknown]
  - Herpes zoster [Recovering/Resolving]
  - Tooth disorder [Recovered/Resolved]
  - Systemic lupus erythematosus [Unknown]
  - Procedural pain [Recovered/Resolved]
  - Blood pressure increased [Unknown]

NARRATIVE: CASE EVENT DATE: 2010
